FAERS Safety Report 5147235-0 (Version None)
Quarter: 2006Q4

REPORT INFORMATION
  Report Type: 
  Country: None (occurrence: None)
  Receive Date: 20061102
  Receipt Date: 20061020
  Transmission Date: 20070319
  Serious: Yes (Hospitalization)
  Sender: FDA-Public Use
  Company Number: 2006BI015307

PATIENT
  Age: 31 Year
  Sex: Male
  Weight: 94.3482 kg

DRUGS (4)
  1. NATALIZUMAB [Suspect]
     Indication: MULTIPLE SCLEROSIS
     Dosage: 300 MG;QM;IV
     Route: 042
     Dates: start: 20060915
  2. NEURONTIN [Concomitant]
  3. BACLOFEN [Concomitant]
  4. AMBIEN [Concomitant]

REACTIONS (16)
  - BLEPHAROSPASM [None]
  - BLOOD PRESSURE INCREASED [None]
  - CLUMSINESS [None]
  - CONFUSIONAL STATE [None]
  - CONVULSION [None]
  - DIZZINESS [None]
  - EYE ROLLING [None]
  - FEELING COLD [None]
  - FLUSHING [None]
  - HEADACHE [None]
  - INFUSION RELATED REACTION [None]
  - MUSCULOSKELETAL STIFFNESS [None]
  - PERIPHERAL COLDNESS [None]
  - UNRESPONSIVE TO STIMULI [None]
  - VERTIGO [None]
  - WEIGHT DECREASED [None]
